FAERS Safety Report 22379257 (Version 1)
Quarter: 2023Q2

REPORT INFORMATION
  Report Type: Report from Study
  Country: US (occurrence: US)
  Receive Date: 20230529
  Receipt Date: 20230529
  Transmission Date: 20230721
  Serious: Yes (Other)
  Sender: FDA-Public Use
  Company Number: US-002147023-NVSC2023US119778

PATIENT
  Weight: 105 kg

DRUGS (1)
  1. KYMRIAH [Suspect]
     Active Substance: TISAGENLECLEUCEL
     Indication: Follicular lymphoma
     Dosage: 3.1E8 CAR-POSITIVE VIABLE T PASS - CELLS, ONCE/SINGLE
     Route: 042
     Dates: start: 20230420

REACTIONS (3)
  - Neutropenia [Unknown]
  - Weight decreased [Unknown]
  - Anaemia [Unknown]
